FAERS Safety Report 14808642 (Version 1)
Quarter: 2018Q2

REPORT INFORMATION
  Report Type: Report from Study
  Country: US (occurrence: US)
  Receive Date: 20180425
  Receipt Date: 20180425
  Transmission Date: 20180711
  Serious: Yes (Other)
  Sender: FDA-Public Use
  Company Number: US-AMGEN-USASL2018014838

PATIENT
  Age: 66 Year
  Sex: Male
  Weight: 85.27 kg

DRUGS (4)
  1. REPATHA [Suspect]
     Active Substance: EVOLOCUMAB
     Indication: BLOOD CHOLESTEROL ABNORMAL
     Dosage: 140 MG, Q2WK
     Route: 065
     Dates: start: 20170727, end: 20171228
  2. PRAVASTATIN. [Concomitant]
     Active Substance: PRAVASTATIN
     Indication: MYALGIA
     Dosage: 10 MG, 3 TIMES/WK
     Dates: start: 20170209, end: 20170330
  3. ZETIA [Concomitant]
     Active Substance: EZETIMIBE
     Indication: MYALGIA
     Dosage: 10 MG, QD
     Dates: start: 20170410, end: 20170907
  4. CRESTOR [Concomitant]
     Active Substance: ROSUVASTATIN CALCIUM
     Indication: MYALGIA
     Dosage: 20 MG, QD
     Dates: start: 20150923

REACTIONS (2)
  - Myalgia [Recovering/Resolving]
  - Influenza like illness [Recovered/Resolved]

NARRATIVE: CASE EVENT DATE: 201711
